FAERS Safety Report 14084691 (Version 4)
Quarter: 2017Q4

REPORT INFORMATION
  Report Type: Spontaneous
  Country: SE (occurrence: SE)
  Receive Date: 20171013
  Receipt Date: 20171107
  Transmission Date: 20180321
  Serious: No
  Sender: FDA-Public Use
  Company Number: SE-ALKABELLO-2017AA003398

PATIENT
  Age: 13 Year
  Sex: Male

DRUGS (1)
  1. ACARIZAX 12 SQ-HDM FRYSTORKAD TABLETT [Suspect]
     Active Substance: DERMATOPHAGOIDES FARINAE\DERMATOPHAGOIDES PTERONYSSINUS
     Dosage: DOSE UNIT:12 SQ-HOUSE DUST MITE
     Dates: start: 20170711, end: 20170808

REACTIONS (7)
  - Palpitations [Recovered/Resolved]
  - Cough [Recovered/Resolved]
  - Pruritus [Recovered/Resolved]
  - Throat irritation [Recovered/Resolved]
  - Feeling cold [Recovered/Resolved]
  - Local reaction [Unknown]
  - Heart rate increased [Recovered/Resolved]

NARRATIVE: CASE EVENT DATE: 20170711
